FAERS Safety Report 4293246-7 (Version None)
Quarter: 2004Q1

REPORT INFORMATION
  Report Type: 
  Country: None (occurrence: None)
  Receive Date: 20040126
  Receipt Date: 20031105
  Transmission Date: 20041129
  Serious: No
  Sender: FDA-Public Use
  Company Number: USA031049915

PATIENT
  Age: 84 Year
  Sex: Female
  Weight: 51 kg

DRUGS (1)
  1. FORTEO [Suspect]
     Dates: start: 20030701

REACTIONS (3)
  - BALANCE DISORDER [None]
  - MUSCULAR WEAKNESS [None]
  - VISUAL ACUITY REDUCED [None]
